FAERS Safety Report 15988455 (Version 1)
Quarter: 2019Q1

REPORT INFORMATION
  Report Type: Spontaneous
  Country: ES (occurrence: ES)
  Receive Date: 20190221
  Receipt Date: 20190221
  Transmission Date: 20190418
  Serious: Yes (Other)
  Sender: FDA-Public Use
  Company Number: ES-ACCORD-108236

PATIENT
  Age: 56 Year
  Sex: Female

DRUGS (1)
  1. MITOMYCIN. [Suspect]
     Active Substance: MITOMYCIN
     Indication: BLADDER PAIN
     Dosage: 1 VIAL, 40/20 MG FIRST WEEKLY * 6 AND THEN MONTHLY WITH HYPERTHERMIA.
     Route: 043
     Dates: start: 20151109, end: 20180523

REACTIONS (3)
  - Onychalgia [Not Recovered/Not Resolved]
  - Skin discolouration [Not Recovered/Not Resolved]
  - Off label use [Unknown]

NARRATIVE: CASE EVENT DATE: 201701
